FAERS Safety Report 11247814 (Version 1)
Quarter: 2015Q3

REPORT INFORMATION
  Report Type: Spontaneous
  Country: GB (occurrence: GB)
  Receive Date: 20150708
  Receipt Date: 20150708
  Transmission Date: 20151125
  Serious: Yes (Other)
  Sender: FDA-Public Use
  Company Number: PHHY2015GB080185

PATIENT
  Age: 69 Year
  Sex: Male

DRUGS (1)
  1. FILGRASTIM [Suspect]
     Active Substance: FILGRASTIM
     Indication: NEUTROPENIA
     Route: 058

REACTIONS (3)
  - Chronic lymphocytic leukaemia [Unknown]
  - Product quality issue [Unknown]
  - Incorrect dose administered [Unknown]
